FAERS Safety Report 6232721-2 (Version None)
Quarter: 2009Q2

REPORT INFORMATION
  Report Type: 
  Country: None (occurrence: None)
  Receive Date: 20090617
  Receipt Date: 20090609
  Transmission Date: 20091009
  Serious: Yes (Life-Threatening, Hospitalization)
  Sender: FDA-Public Use
  Company Number: US-NOVOPROD-286303

PATIENT
  Sex: Female
  Weight: 60.771 kg

DRUGS (3)
  1. NOVOLOG [Suspect]
     Indication: TYPE 1 DIABETES MELLITUS
     Dosage: 13 IU, QD (4U BREAKFAST + LUNCH; 5U DINNER)
     Route: 058
     Dates: start: 20060405
  2. NOVOLOG [Suspect]
     Dosage: UNKNOWN
  3. LANTUS [Concomitant]
     Indication: TYPE 1 DIABETES MELLITUS
     Dosage: 9 IU, QD (PM)
     Route: 058

REACTIONS (5)
  - BLOOD GLUCOSE DECREASED [None]
  - DEVICE FAILURE [None]
  - HYPOGLYCAEMIC COMA [None]
  - MULTIPLE FRACTURES [None]
  - ROAD TRAFFIC ACCIDENT [None]
